FAERS Safety Report 4517580-8 (Version None)
Quarter: 2004Q4

REPORT INFORMATION
  Report Type: 
  Country: None (occurrence: None)
  Receive Date: 20041203
  Receipt Date: 20020207
  Transmission Date: 20050328
  Serious: Yes (Hospitalization)
  Sender: FDA-Public Use
  Company Number: US-BRISTOL-MYERS SQUIBB COMPANY-11714169

PATIENT
  Age: 36 Year
  Sex: Female
  Weight: 61 kg

DRUGS (9)
  1. ZERIT [Suspect]
     Indication: HIV INFECTION
     Dosage: ONGOING DURING THE FIRST THREE MONTHS OF PREGNANCY
     Route: 048
     Dates: start: 19970601, end: 20010501
  2. VIDEX [Suspect]
     Indication: HIV INFECTION
     Dosage: THERAPY ONGOING AT CONCEPTION.
     Route: 048
     Dates: start: 19990601
  3. ABACAVIR [Concomitant]
     Indication: HIV INFECTION
     Dosage: THERAPY DURING GESTATION.
     Route: 048
     Dates: start: 20010301
  4. ZIDOVUDINE [Concomitant]
     Indication: HIV INFECTION
     Dosage: THERAPY FROM 3 MONTHS GESTATION.
     Route: 048
     Dates: start: 20010501
  5. NEVIRAPINE [Concomitant]
     Indication: HIV INFECTION
     Dosage: ONGOING AT CONCEPTION
     Route: 048
     Dates: start: 19990601
  6. FOLIC ACID [Concomitant]
     Dosage: DOSAGE FORM = TABLET.  THERAPY DURING GESTATION.
  7. COTRIM [Concomitant]
     Indication: INFECTION PROPHYLAXIS
     Dosage: THERAPY DURING GESTATION. ^960 MG DAILY^
  8. FERROUS SULFATE TAB [Concomitant]
     Indication: ANAEMIA
     Dosage: DOSAGE FORM = TABLET.  THERAPY DURING GESTATION.
  9. DEXTROSE [Concomitant]
     Route: 041

REACTIONS (7)
  - CAESAREAN SECTION [None]
  - DRUG EXPOSURE DURING PREGNANCY [None]
  - INSULIN RESISTANCE [None]
  - LIPODYSTROPHY ACQUIRED [None]
  - PREGNANCY [None]
  - THROMBOCYTOPENIA [None]
  - VAGINAL HAEMORRHAGE [None]
